FAERS Safety Report 26120294 (Version 1)
Quarter: 2025Q4

REPORT INFORMATION
  Report Type: Spontaneous
  Country: US (occurrence: US)
  Receive Date: 20251204
  Receipt Date: 20251204
  Transmission Date: 20260117
  Serious: No
  Sender: CELLTRION
  Company Number: US-CELLTRION INC.-2025US037915

PATIENT

DRUGS (2)
  1. ADALIMUMAB [Suspect]
     Active Substance: ADALIMUMAB
     Indication: Autoimmune disorder
     Dosage: 40 MG EVERY 2 WEEKS
     Route: 058
     Dates: start: 20251008
  2. ADALIMUMAB [Suspect]
     Active Substance: ADALIMUMAB

REACTIONS (6)
  - Device malfunction [Recovered/Resolved]
  - Product packaging issue [Unknown]
  - Accidental exposure to product [Recovered/Resolved]
  - Exposure via skin contact [Recovered/Resolved]
  - Wrong technique in product usage process [Recovered/Resolved]
  - Intentional product use issue [Unknown]

NARRATIVE: CASE EVENT DATE: 20251008
